FAERS Safety Report 11467611 (Version 1)
Quarter: 2015Q3

REPORT INFORMATION
  Report Type: Spontaneous
  Country: US (occurrence: None)
  Receive Date: 20150904
  Receipt Date: 20150904
  Transmission Date: 20151125
  Serious: No
  Sender: FDA-Public Use
  Company Number: None

PATIENT
  Age: 68 Year
  Sex: Female

DRUGS (3)
  1. RADIATION DETOX [Suspect]
     Active Substance: HOMEOPATHICS
     Indication: UPPER RESPIRATORY TRACT INFECTION
     Dates: start: 201404, end: 20140528
  2. LYMPHATIC DRAINER [Suspect]
     Active Substance: HOMEOPATHICS
     Dates: start: 201404, end: 20140528
  3. PESTICIDE DETOX REMEDY [Suspect]
     Active Substance: HOMEOPATHICS
     Indication: UPPER RESPIRATORY TRACT INFECTION
     Dates: start: 201404, end: 20140528

REACTIONS (9)
  - Fatigue [None]
  - Aspartate aminotransferase increased [None]
  - Blood alkaline phosphatase increased [None]
  - Blood bilirubin increased [None]
  - Nausea [None]
  - Decreased appetite [None]
  - Alanine aminotransferase increased [None]
  - Vomiting [None]
  - Hepatic enzyme increased [None]

NARRATIVE: CASE EVENT DATE: 20140508
